FAERS Safety Report 5070350-7 (Version None)
Quarter: 2006Q3

REPORT INFORMATION
  Report Type: 
  Country: None (occurrence: None)
  Receive Date: 20060731
  Receipt Date: 20060720
  Transmission Date: 20061208
  Serious: Yes (Other)
  Sender: FDA-Public Use
  Company Number: CHNY2006JP01563

PATIENT
  Age: 73 Year
  Sex: Female
  Weight: 42 kg

DRUGS (11)
  1. NICOTINE [Suspect]
     Indication: NICOTINE DEPENDENCE
     Dosage: SEE IMAGE
     Route: 062
     Dates: end: 20060513
  2. NICOTINE [Suspect]
     Indication: NICOTINE DEPENDENCE
     Dosage: SEE IMAGE
     Route: 062
     Dates: start: 20060401
  3. NICOTINE [Suspect]
     Indication: NICOTINE DEPENDENCE
     Dosage: SEE IMAGE
     Route: 062
     Dates: start: 20060401
  4. TANATRIL (IMIDAPRIL HYDROCHLORIDE) [Concomitant]
  5. FLUITRAN (TRICHLORMETHIAZIDE) [Concomitant]
  6. NORVASC [Concomitant]
  7. METHYCOBAL (MECOBALAMIN) [Concomitant]
  8. PRAVASTATIN [Concomitant]
  9. NEUQUINON (UBIDECARENONE) [Concomitant]
  10. CARNACULIN (KALLIDINOGENASE) [Concomitant]
  11. MERISLON (BETAHISTINE HYDROCHLORIDE) [Concomitant]

REACTIONS (6)
  - APPLICATION SITE SWELLING [None]
  - ARTHRALGIA [None]
  - JOINT SWELLING [None]
  - OEDEMA PERIPHERAL [None]
  - PAIN [None]
  - SWELLING [None]
